FAERS Safety Report 4284739-7 (Version None)
Quarter: 2004Q1

REPORT INFORMATION
  Report Type: 
  Country: None (occurrence: None)
  Receive Date: 20040202
  Receipt Date: 20040120
  Transmission Date: 20041129
  Serious: Yes (Hospitalization)
  Sender: FDA-Public Use
  Company Number: 6006996

PATIENT
  Age: 94 Year
  Sex: Female

DRUGS (6)
  1. LEVOTHYROXINE SODIUM [Suspect]
     Indication: HYPOTHYROIDISM
     Dosage: 50 MCG (50 MCG, 1 IN 1 D)
     Route: 048
  2. DAFLON                       (DIOSMIN) [Suspect]
     Indication: OSTEOARTHRITIS
     Dosage: 2000 MG
     Route: 048
     Dates: start: 20031022
  3. PLAVIX [Suspect]
     Dosage: 75 MG (75 MG 1 IN 1 D)
     Route: 048
     Dates: start: 20031001, end: 20031015
  4. DIALGIREX    (PARACETAMOL, DEXTROPROPOXYPHENE HYDROCHLORIDE) [Suspect]
     Dosage: SEE IMAGE
     Route: 048
     Dates: end: 20031022
  5. ATARAX [Suspect]
     Indication: ANXIETY
     Dosage: 25 MG (25 MG 1 IN 1 D)
     Route: 048
  6. GAVISCON [Suspect]
     Indication: OESOPHAGITIS
     Dosage: 2 DOSAGE FORMS
     Route: 048

REACTIONS (2)
  - ECZEMA [None]
  - PRURITUS [None]
